FAERS Safety Report 8557475-6 (Version None)
Quarter: 2012Q3

REPORT INFORMATION
  Report Type: 
  Country: None (occurrence: None)
  Receive Date: 20120801
  Receipt Date: 20120718
  Transmission Date: 20120928
  Serious: Yes (Hospitalization, Other)
  Sender: FDA-Public Use
  Company Number: FR-009507513-1207FRA010291

PATIENT

DRUGS (9)
  1. PLAVIX [Concomitant]
  2. IMOVANCE [Concomitant]
  3. CETIRIZINE HCL [Concomitant]
  4. CALCIUM CARBONATE [Concomitant]
  5. ALENDRONATE SODIUM [Suspect]
     Dosage: UNK
     Route: 048
     Dates: end: 20120315
  6. ATACAND [Suspect]
     Dosage: UNK
     Route: 048
     Dates: end: 20120315
  7. ACETAMINOPHEN [Concomitant]
  8. LASIX [Suspect]
     Route: 048
  9. TAMSULOSIN HCL [Suspect]
     Dosage: UNK
     Route: 048
     Dates: end: 20120315

REACTIONS (2)
  - DRUG ERUPTION [None]
  - PEMPHIGOID [None]
